FAERS Safety Report 18149170 (Version 1)
Quarter: 2020Q3

REPORT INFORMATION
  Report Type: Spontaneous
  Country: US (occurrence: US)
  Receive Date: 20200813
  Receipt Date: 20200813
  Transmission Date: 20201103
  Serious: No
  Sender: FDA-Public Use
  Company Number: US-SA-2020SA209538

PATIENT

DRUGS (12)
  1. LIDOCAINE. [Concomitant]
     Active Substance: LIDOCAINE
  2. SODIUM CHLORIDE. [Concomitant]
     Active Substance: SODIUM CHLORIDE
  3. METHYLPREDNISOLONE. [Concomitant]
     Active Substance: METHYLPREDNISOLONE
  4. EPIDUO FORTE [Concomitant]
     Active Substance: ADAPALENE\BENZOYL PEROXIDE
  5. NORMAL SALINE [Concomitant]
     Active Substance: SODIUM CHLORIDE
  6. LEVOTHYROXINE. [Concomitant]
     Active Substance: LEVOTHYROXINE
  7. CEREZYME [Suspect]
     Active Substance: IMIGLUCERASE
     Indication: GAUCHER^S DISEASE
     Dosage: 54.27 IU/KG (3200 U), QOW
     Route: 042
     Dates: start: 20190319
  8. CITRACAL + D [CALCIUM CITRATE;COLECALCIFEROL] [Concomitant]
     Active Substance: CALCIUM CITRATE\CHOLECALCIFEROL
  9. BENADRYL [Concomitant]
     Active Substance: DIPHENHYDRAMINE HYDROCHLORIDE
  10. EPINEPHRINE. [Concomitant]
     Active Substance: EPINEPHRINE
  11. BUPROPION [BUPROPION HYDROCHLORIDE] [Concomitant]
     Active Substance: BUPROPION HYDROCHLORIDE
  12. LO LOESTRIN FE [Concomitant]
     Active Substance: ETHINYL ESTRADIOL\NORETHINDRONE ACETATE

REACTIONS (2)
  - Exposure during pregnancy [Unknown]
  - Weight decreased [Unknown]

NARRATIVE: CASE EVENT DATE: 202007
